FAERS Safety Report 24276054 (Version 1)
Quarter: 2024Q3

REPORT INFORMATION
  Report Type: Report from Study
  Country: US (occurrence: US)
  Receive Date: 20240903
  Receipt Date: 20240903
  Transmission Date: 20241016
  Serious: Yes (Other)
  Sender: TAKEDA
  Company Number: US-TAKEDA-2024TUS062982

PATIENT
  Sex: Male

DRUGS (6)
  1. ADVATE [Suspect]
     Active Substance: ANTIHEMOPHILIC FACTOR, HUMAN RECOMBINANT
     Indication: Factor VIII deficiency
     Dosage: 2000 INTERNATIONAL UNIT, Q72H
     Route: 050
     Dates: start: 20240620
  2. ADVATE [Suspect]
     Active Substance: ANTIHEMOPHILIC FACTOR, HUMAN RECOMBINANT
     Indication: Factor VIII deficiency
     Dosage: 2000 INTERNATIONAL UNIT, Q72H
     Route: 050
     Dates: start: 20240620
  3. ADVATE [Suspect]
     Active Substance: ANTIHEMOPHILIC FACTOR, HUMAN RECOMBINANT
     Indication: Factor VIII deficiency
     Dosage: 2000 INTERNATIONAL UNIT, Q72H
     Route: 050
     Dates: start: 20240620
  4. ADVATE [Suspect]
     Active Substance: ANTIHEMOPHILIC FACTOR, HUMAN RECOMBINANT
     Dosage: 2000 INTERNATIONAL UNIT, Q3WEEKS
     Route: 050
     Dates: start: 20240624
  5. ADVATE [Suspect]
     Active Substance: ANTIHEMOPHILIC FACTOR, HUMAN RECOMBINANT
     Dosage: 2000 INTERNATIONAL UNIT, Q3WEEKS
     Route: 050
     Dates: start: 20240624
  6. ADVATE [Suspect]
     Active Substance: ANTIHEMOPHILIC FACTOR, HUMAN RECOMBINANT
     Dosage: 2000 INTERNATIONAL UNIT, Q3WEEKS
     Route: 050
     Dates: start: 20240624

REACTIONS (5)
  - Haemorrhage [Unknown]
  - Joint injury [Recovering/Resolving]
  - Tooth fracture [Recovering/Resolving]
  - Coagulation factor VII level abnormal [Unknown]
  - Joint swelling [Unknown]
